FAERS Safety Report 4545879-8 (Version None)
Quarter: 2005Q1

REPORT INFORMATION
  Report Type: 
  Country: None (occurrence: None)
  Receive Date: 20050103
  Receipt Date: 20041222
  Transmission Date: 20050727
  Serious: Yes (Death, Hospitalization)
  Sender: FDA-Public Use
  Company Number: 2004112591

PATIENT
  Age: 39 Year
  Sex: Female

DRUGS (7)
  1. GEODON [Suspect]
     Indication: BIPOLAR DISORDER
     Dosage: INTRAMUSCULAR
     Route: 030
     Dates: start: 20041107, end: 20041107
  2. HALOPERIDOL [Concomitant]
  3. BENZTROPINE MESYLATE [Concomitant]
  4. METFORMIN HCL [Concomitant]
  5. LITHIUM (LITHIUM) [Concomitant]
  6. ALL OTHER THERAPEUTIC PRODUCTS [Concomitant]
  7. LAMOTRIGINE [Concomitant]

REACTIONS (7)
  - BODY TEMPERATURE INCREASED [None]
  - CARDIO-RESPIRATORY ARREST [None]
  - COMA [None]
  - RESPIRATORY RATE INCREASED [None]
  - SCREAMING [None]
  - SINUS TACHYCARDIA [None]
  - SOMNOLENCE [None]
